FAERS Safety Report 6695203-X (Version None)
Quarter: 2010Q2

REPORT INFORMATION
  Report Type: 
  Country: None (occurrence: None)
  Receive Date: 20100423
  Receipt Date: 20100412
  Transmission Date: 20101027
  Serious: Yes (Other)
  Sender: FDA-Public Use
  Company Number: CI-GILEAD-2010-0028484

PATIENT
  Age: 26 Year
  Sex: Female
  Weight: 65 kg

DRUGS (5)
  1. TRUVADA [Suspect]
     Indication: HIV INFECTION
     Dates: start: 20100302, end: 20100405
  2. EFAVIRENZ [Suspect]
     Indication: HIV INFECTION
     Dates: start: 20100302, end: 20100405
  3. SULFAMETHOXAZOLE AND TRIMETHOPRIM [Suspect]
     Indication: OPPORTUNISTIC INFECTION PROPHYLAXIS
     Dates: end: 20100405
  4. MEDROXYPROGESTERONE ACETATE [Suspect]
     Indication: CONTRACEPTION
     Dates: start: 20100302, end: 20100302
  5. ISONIAZID [Concomitant]
     Indication: ANTIBIOTIC PROPHYLAXIS
     Dates: start: 20091002, end: 20100112

REACTIONS (1)
  - CELL DEATH [None]
